FAERS Safety Report 25842864 (Version 1)
Quarter: 2025Q3

REPORT INFORMATION
  Report Type: Spontaneous
  Country: VN (occurrence: VN)
  Receive Date: 20250924
  Receipt Date: 20250924
  Transmission Date: 20251020
  Serious: Yes (Other)
  Sender: BAYER HEALTHCARE PHARMACEUTICALS INC.
  Company Number: VN-BAYER-2025A123920

PATIENT
  Age: 55 Year

DRUGS (2)
  1. STIVARGA [Suspect]
     Active Substance: REGORAFENIB MONOHYDRATE
     Dosage: 80 MG, QD 1ST WEEK
     Dates: start: 202208, end: 202209
  2. STIVARGA [Suspect]
     Active Substance: REGORAFENIB MONOHYDRATE
     Dates: end: 202409

REACTIONS (4)
  - Disease progression [Unknown]
  - Hypoaesthesia [Unknown]
  - Hepatic enzyme increased [Unknown]
  - Product use issue [Recovered/Resolved]

NARRATIVE: CASE EVENT DATE: 20220801
